FAERS Safety Report 21614772 (Version 8)
Quarter: 2024Q2

REPORT INFORMATION
  Report Type: Spontaneous
  Country: US (occurrence: US)
  Receive Date: 20221118
  Receipt Date: 20240531
  Transmission Date: 20240715
  Serious: Yes (Hospitalization, Other)
  Sender: FDA-Public Use
  Company Number: US-PFIZER INC-PV202200105666

PATIENT
  Age: 79 Year
  Sex: Female

DRUGS (1)
  1. CIBINQO [Suspect]
     Active Substance: ABROCITINIB
     Dosage: 100 MG
     Route: 048

REACTIONS (9)
  - Fall [Unknown]
  - Hip fracture [Unknown]
  - Thrombosis [Unknown]
  - Dementia [Unknown]
  - Product dose omission in error [Unknown]
  - Pruritus [Unknown]
  - Seasonal allergy [Unknown]
  - Sneezing [Unknown]
  - Rhinorrhoea [Unknown]
